FAERS Safety Report 7739919-2 (Version None)
Quarter: 2011Q3

REPORT INFORMATION
  Report Type: 
  Country: None (occurrence: None)
  Receive Date: 20110909
  Receipt Date: 20110906
  Transmission Date: 20111222
  Serious: Yes (Life-Threatening, Hospitalization, Disabling, Other)
  Sender: FDA-Public Use
  Company Number: PHEH2009US01710

PATIENT
  Sex: Female

DRUGS (21)
  1. CALCIUM W/VITAMIN D NOS [Concomitant]
     Dosage: UNK UKN, UNK
  2. FOSAMAX [Concomitant]
     Dosage: 70 MG, QW
  3. RECLAST [Suspect]
     Indication: OSTEOPOROSIS
     Dosage: 5 MG, ONCE/SINGLE
     Dates: start: 20080918, end: 20080918
  4. LIDODERM [Concomitant]
     Indication: PAIN
     Dosage: UNK UKN, UNK
     Route: 062
  5. DUONEB [Concomitant]
     Dosage: UNK UKN, UNK
  6. LIDOCAINE [Concomitant]
     Dosage: UNK UKN, UNK
  7. PLO [Concomitant]
     Dosage: UNK UKN, UNK
  8. VICODIN [Concomitant]
     Dosage: UNK UKN, UNK
  9. SINGULAIR [Concomitant]
     Dosage: 10 MG, QD
  10. KETOPROFEN [Concomitant]
     Dosage: UNK UKN, UNK
  11. CALCIUM WITH VITAMIN D [Concomitant]
     Dosage: UNK UKN, UNK
  12. NEURONTIN [Suspect]
     Indication: FIBROMYALGIA
     Dosage: 600 MG, TID
     Route: 048
  13. RANITIDINE [Concomitant]
     Dosage: UNK UKN, UNK
  14. KLONOPIN [Concomitant]
     Indication: MUSCLE SPASMS
     Dosage: 1 DF, QHS
  15. GABAPENTIN [Concomitant]
     Dosage: UNK UKN, UNK
  16. OMEPRAZOLE [Concomitant]
     Dosage: 20 MG, QD
  17. WARFARIN SODIUM [Concomitant]
     Dosage: 2 MG, (TAKES 2 MG ON MONDAY, 4 MG ON TUESDAY, 2 MG ON WEDNESDAY, 4 MG FROM THURSDAY TO SATURDAY)
  18. ADVAIR DISKUS 100/50 [Concomitant]
     Dosage: UNK UKN, UNK
  19. MULTIVITAMINS, COMBINATIONS [Concomitant]
     Dosage: UNK UKN, UNK
  20. CLONAZEPAM [Concomitant]
     Dosage: UNK UKN, UNK
  21. FLUTICASONE PROPIONATE [Concomitant]
     Dosage: UNK UKN, UNK

REACTIONS (28)
  - QUALITY OF LIFE DECREASED [None]
  - DYSPNOEA [None]
  - MUSCLE SPASMS [None]
  - ASTHENIA [None]
  - SOMNOLENCE [None]
  - MYALGIA [None]
  - PAIN [None]
  - DYSSTASIA [None]
  - NEURALGIA [None]
  - INFLUENZA LIKE ILLNESS [None]
  - THROMBOSIS [None]
  - FIBROMYALGIA [None]
  - BALANCE DISORDER [None]
  - CONDITION AGGRAVATED [None]
  - PAIN IN EXTREMITY [None]
  - SWELLING [None]
  - HYPOKINESIA [None]
  - ABASIA [None]
  - BONE DENSITY DECREASED [None]
  - HEADACHE [None]
  - BONE PAIN [None]
  - ERYTHEMA [None]
  - ARTHRALGIA [None]
  - ASTHMA [None]
  - GASTROOESOPHAGEAL REFLUX DISEASE [None]
  - OSTEOPENIA [None]
  - FALL [None]
  - MIGRAINE [None]
